FAERS Safety Report 7002832-2 (Version None)
Quarter: 2010Q3

REPORT INFORMATION
  Report Type: 
  Country: None (occurrence: None)
  Receive Date: 20100920
  Receipt Date: 20070529
  Transmission Date: 20110219
  Serious: Yes (Other)
  Sender: FDA-Public Use
  Company Number: US-ASTRAZENECA-2006UW24147

PATIENT
  Sex: Female

DRUGS (7)
  1. SEROQUEL [Suspect]
     Indication: SCHIZOPHRENIA
     Route: 048
     Dates: start: 20030101
  2. SEROQUEL [Suspect]
     Dosage: 100-600 MG
     Route: 048
     Dates: start: 20020717, end: 20020101
  3. SEROQUEL [Suspect]
     Route: 048
     Dates: start: 20021231
  4. HALDOL [Concomitant]
     Dates: start: 19900101, end: 20060101
  5. HALDOL [Concomitant]
     Route: 030
     Dates: start: 20021226
  6. TRAZODONE HCL [Concomitant]
     Dates: start: 20060606, end: 20061229
  7. COGENTIN [Concomitant]
     Dates: start: 20021226

REACTIONS (1)
  - TARDIVE DYSKINESIA [None]
